FAERS Safety Report 26050448 (Version 2)
Quarter: 2025Q4

REPORT INFORMATION
  Report Type: Spontaneous
  Country: IN (occurrence: IN)
  Receive Date: 20251116
  Receipt Date: 20251212
  Transmission Date: 20260117
  Serious: Yes (Hospitalization, Other)
  Sender: CIPLA
  Company Number: IN-CIPLA LTD.-2025IN14228

PATIENT

DRUGS (1)
  1. BLEOMYCIN SULFATE [Suspect]
     Active Substance: BLEOMYCIN SULFATE
     Indication: Craniopharyngioma
     Dosage: 2 MG PER DOSE, 4 TIMES/WEEK OVER 3 WEEKS(14 DOSES INTRACYSTIC BLEOMYCIN)
     Route: 065

REACTIONS (1)
  - Myelitis [Recovering/Resolving]
